FAERS Safety Report 10222726 (Version 4)
Quarter: 2014Q3

REPORT INFORMATION
  Report Type: Report from Study
  Country: JP (occurrence: JP)
  Receive Date: 20140606
  Receipt Date: 20140729
  Transmission Date: 20150326
  Serious: Yes (Hospitalization)
  Sender: FDA-Public Use
  Company Number: JP-EXELIXIS-XL18414004354

PATIENT
  Age: 46 Year
  Sex: Male
  Weight: 67.1 kg

DRUGS (12)
  1. SALIPARA CODEINE [Concomitant]
  2. ADONA [Concomitant]
     Active Substance: CARBAZOCHROME SODIUM SULFONATE
  3. CRAVIT [Concomitant]
     Active Substance: LEVOFLOXACIN
  4. DEXALITINE [Concomitant]
  5. TRANSAMIN [Concomitant]
     Active Substance: TRANEXAMIC ACID
  6. NAUZELIN [Concomitant]
     Active Substance: DOMPERIDONE
  7. OXYNORM [Concomitant]
     Active Substance: OXYCODONE HYDROCHLORIDE
  8. OXYCONTIN [Concomitant]
     Active Substance: OXYCODONE HYDROCHLORIDE
  9. XL184 [Suspect]
     Active Substance: CABOZANTINIB
     Indication: NON-SMALL CELL LUNG CANCER
     Dosage: 60 MG, QD
     Route: 048
     Dates: start: 20140421, end: 20140523
  10. ZYPREXA [Concomitant]
     Active Substance: OLANZAPINE
  11. MAGMITT [Concomitant]
     Active Substance: MAGNESIUM OXIDE
  12. MUCODINE [Concomitant]

REACTIONS (1)
  - Lung infection [Not Recovered/Not Resolved]

NARRATIVE: CASE EVENT DATE: 20140528
